FAERS Safety Report 4502486-0 (Version None)
Quarter: 2004Q3

REPORT INFORMATION
  Report Type: 
  Country: None (occurrence: None)
  Receive Date: 20040928
  Receipt Date: 20040628
  Transmission Date: 20050211
  Serious: No
  Sender: FDA-Public Use
  Company Number: 04P-163-0264947-00

PATIENT
  Age: 43 Year
  Sex: Female
  Weight: 83.9154 kg

DRUGS (8)
  1. HUMIRA [Suspect]
     Indication: RHEUMATOID ARTHRITIS
     Dosage: 40 MG, 1 IN 2 WK, SUBCUTANEOUS
     Route: 058
     Dates: start: 20040307
  2. METHOTREXATE [Concomitant]
  3. PREDNISONE [Concomitant]
  4. LEFLUNOMIDE [Concomitant]
  5. NAPROXEN [Concomitant]
  6. FOLIC ACID [Concomitant]
  7. CALCIUM [Concomitant]
  8. IRON [Concomitant]

REACTIONS (2)
  - INJECTION SITE ERYTHEMA [None]
  - INJECTION SITE PRURITUS [None]
